FAERS Safety Report 8483623-2 (Version None)
Quarter: 2012Q3

REPORT INFORMATION
  Report Type: 
  Country: None (occurrence: None)
  Receive Date: 20120702
  Receipt Date: 20120627
  Transmission Date: 20120928
  Serious: Yes (Other)
  Sender: FDA-Public Use
  Company Number: US-ROCHE-1071661

PATIENT
  Sex: Male

DRUGS (1)
  1. ZELBORAF [Suspect]
     Indication: PRODUCT USED FOR UNKNOWN INDICATION
     Dosage: DOSE REDUCED
     Route: 065

REACTIONS (6)
  - SQUAMOUS CELL CARCINOMA [None]
  - SKIN PAPILLOMA [None]
  - FATIGUE [None]
  - MASS [None]
  - DECREASED APPETITE [None]
  - RASH [None]
